FAERS Safety Report 5326214-4 (Version None)
Quarter: 2007Q2

REPORT INFORMATION
  Report Type: 
  Country: None (occurrence: None)
  Receive Date: 20070516
  Receipt Date: 20070515
  Transmission Date: 20071010
  Serious: Yes (Death, Hospitalization)
  Sender: FDA-Public Use
  Company Number: US-BRISTOL-MYERS SQUIBB COMPANY-13780945

PATIENT
  Sex: Female

DRUGS (1)
  1. TEQUIN [Suspect]
     Dates: start: 20020620, end: 20020629

REACTIONS (5)
  - DEATH [None]
  - DIABETES MELLITUS [None]
  - DIABETIC KETOACIDOSIS [None]
  - HYPERGLYCAEMIA [None]
  - RENAL FAILURE CHRONIC [None]
